FAERS Safety Report 4665740-8 (Version None)
Quarter: 2005Q2

REPORT INFORMATION
  Report Type: 
  Country: None (occurrence: None)
  Receive Date: 20050517
  Receipt Date: 20050428
  Transmission Date: 20051028
  Serious: Yes (Hospitalization)
  Sender: FDA-Public Use
  Company Number: USA050597087

PATIENT
  Sex: Female

DRUGS (1)
  1. CYMBALTA [Suspect]
     Dosage: 60 MG
     Dates: start: 20050308, end: 20050414

REACTIONS (4)
  - ASTHENIA [None]
  - HEARING IMPAIRED [None]
  - TINNITUS [None]
  - TREMOR [None]
